FAERS Safety Report 10175724 (Version 1)
Quarter: 2014Q2

REPORT INFORMATION
  Report Type: Report from Study
  Country: NL (occurrence: NL)
  Receive Date: 20140516
  Receipt Date: 20140516
  Transmission Date: 20141212
  Serious: Yes (Hospitalization)
  Sender: FDA-Public Use
  Company Number: NL-ROCHE-1398825

PATIENT
  Age: 77 Year
  Sex: Male

DRUGS (3)
  1. CAPECITABINE [Suspect]
     Indication: GASTRIC CANCER
     Dosage: DAILY (DAY 1 TO 14), BID FOR 2 WKS, 3WKS, BID FOR 5WKS AND 5 WKS
     Route: 048
     Dates: start: 20140403, end: 20140503
  2. EPIRUBICIN [Suspect]
     Indication: GASTRIC CANCER
     Route: 042
     Dates: start: 20140403, end: 20140424
  3. CISPLATIN [Suspect]
     Indication: GASTRIC CANCER
     Route: 042
     Dates: start: 20140403

REACTIONS (4)
  - Asthenia [Unknown]
  - Mucosal inflammation [Unknown]
  - Vomiting [Unknown]
  - Diarrhoea [Unknown]
